FAERS Safety Report 14992573 (Version 1)
Quarter: 2018Q2

REPORT INFORMATION
  Report Type: Spontaneous
  Country: NO (occurrence: NL)
  Receive Date: 20180609
  Receipt Date: 20180609
  Transmission Date: 20180711
  Serious: Yes (Other)
  Sender: FDA-Public Use
  Company Number: NL-TEVA-2018-NO-904362

PATIENT
  Age: 62 Year
  Sex: Male
  Weight: 73 kg

DRUGS (2)
  1. METOPROLOL SANDOZ [Suspect]
     Active Substance: METOPROLOL
     Indication: CARDIAC FAILURE
     Dates: start: 20180218
  2. RAMIPRIL ACTAVIS [Suspect]
     Active Substance: RAMIPRIL
     Indication: CARDIAC FAILURE
     Dosage: 2,5 MG IN THE MORNING ?1,25 MG IN THE EVENING
     Dates: start: 20180218

REACTIONS (4)
  - Orthostatic hypotension [Recovering/Resolving]
  - Cough [Not Recovered/Not Resolved]
  - Arrhythmia [Not Recovered/Not Resolved]
  - Extrasystoles [Not Recovered/Not Resolved]

NARRATIVE: CASE EVENT DATE: 20180223
